FAERS Safety Report 17392875 (Version 2)
Quarter: 2020Q3

REPORT INFORMATION
  Report Type: Spontaneous
  Country: US (occurrence: US)
  Receive Date: 20200207
  Receipt Date: 20200914
  Transmission Date: 20201102
  Serious: No
  Sender: FDA-Public Use
  Company Number: US-SA-2020SA026540

PATIENT

DRUGS (1)
  1. DUPIXENT [Suspect]
     Active Substance: DUPILUMAB
     Indication: NASAL POLYPS
     Dosage: 300 MG, QOW
     Route: 058
     Dates: start: 20200126

REACTIONS (9)
  - Pyrexia [Unknown]
  - Influenza like illness [Unknown]
  - Arthralgia [Unknown]
  - Wheezing [Unknown]
  - Condition aggravated [Unknown]
  - Sputum discoloured [Unknown]
  - Nasal congestion [Unknown]
  - Condition aggravated [Unknown]
  - Nasal polyps [Unknown]

NARRATIVE: CASE EVENT DATE: 2020
